FAERS Safety Report 8135641-1 (Version None)
Quarter: 2012Q1

REPORT INFORMATION
  Report Type: 
  Country: None (occurrence: None)
  Receive Date: 20120214
  Receipt Date: 20120209
  Transmission Date: 20120608
  Serious: Yes (Death, Hospitalization, Disabling, Other)
  Sender: FDA-Public Use
  Company Number: PHHY2012MX011844

PATIENT
  Sex: Female

DRUGS (4)
  1. DIGOXIN [Concomitant]
     Indication: CARDIAC DISORDER
     Dosage: 0.25 MG, HALF TABLET
  2. CHLORTHALIDONE [Concomitant]
  3. DIOVAN [Suspect]
     Indication: HYPERTENSION
     Dosage: 80 MG, 2 TABLETS DAILY
     Dates: start: 20020201, end: 20111107
  4. PANTOPRAZOLE [Concomitant]
     Dosage: ONE TABLET DAILY

REACTIONS (18)
  - DECREASED APPETITE [None]
  - APHONIA [None]
  - ASTHENIA [None]
  - BLOOD UREA INCREASED [None]
  - FEELING ABNORMAL [None]
  - DIVERTICULUM [None]
  - RENAL DISORDER [None]
  - HIATUS HERNIA [None]
  - CARDIAC DISCOMFORT [None]
  - OEDEMA PERIPHERAL [None]
  - PAIN [None]
  - HYPERHIDROSIS [None]
  - ARTERIOSCLEROSIS [None]
  - BRONCHITIS CHRONIC [None]
  - CONSTIPATION [None]
  - MELAENA [None]
  - MYOCARDIAL INFARCTION [None]
  - INTESTINAL OBSTRUCTION [None]
